FAERS Safety Report 8301227-9 (Version None)
Quarter: 2012Q2

REPORT INFORMATION
  Report Type: 
  Country: None (occurrence: None)
  Receive Date: 20120420
  Receipt Date: 20120420
  Transmission Date: 20120825
  Serious: Yes (Life-Threatening, Hospitalization, Other)
  Sender: FDA-Public Use
  Company Number: None

PATIENT
  Age: 56 Year
  Sex: Male
  Weight: 86.182 kg

DRUGS (4)
  1. ENBREL [Concomitant]
  2. REMICADE [Concomitant]
  3. HUMIRA [Suspect]
     Indication: CROHN'S DISEASE
     Dosage: 40 MG / 0.8ML
     Route: 058
     Dates: start: 20081015, end: 20111201
  4. HUMIRA [Concomitant]

REACTIONS (6)
  - ADVERSE DRUG REACTION [None]
  - DIFFUSE LARGE B-CELL LYMPHOMA [None]
  - ECONOMIC PROBLEM [None]
  - IMMUNE SYSTEM DISORDER [None]
  - PAIN [None]
  - BONE LOSS [None]
